FAERS Safety Report 13899875 (Version 1)
Quarter: 2017Q3

REPORT INFORMATION
  Report Type: Spontaneous
  Country: RU (occurrence: RU)
  Receive Date: 20170824
  Receipt Date: 20170824
  Transmission Date: 20171127
  Serious: Yes (Other)
  Sender: FDA-Public Use
  Company Number: RU-ASTRAZENECA-2017SE86251

PATIENT
  Age: 52 Year
  Sex: Female
  Weight: 120 kg

DRUGS (3)
  1. FORXIGA [Suspect]
     Active Substance: DAPAGLIFLOZIN
     Indication: TYPE 2 DIABETES MELLITUS
     Route: 048
     Dates: start: 201608, end: 201707
  2. METFORMIN [Concomitant]
     Active Substance: METFORMIN HYDROCHLORIDE
  3. GLIMEPIRIDE. [Concomitant]
     Active Substance: GLIMEPIRIDE

REACTIONS (7)
  - Tearfulness [Unknown]
  - Thyroid mass [Unknown]
  - Tri-iodothyronine increased [Unknown]
  - Thyroxine increased [Unknown]
  - Increased appetite [Unknown]
  - Nervousness [Unknown]
  - Stress [Unknown]

NARRATIVE: CASE EVENT DATE: 201612
